FAERS Safety Report 7911229-X (Version None)
Quarter: 2011Q4

REPORT INFORMATION
  Report Type: 
  Country: None (occurrence: None)
  Receive Date: 20111110
  Receipt Date: 20111110
  Transmission Date: 20120403
  Serious: Yes (Other)
  Sender: FDA-Public Use
  Company Number: None

PATIENT
  Sex: Male

DRUGS (2)
  1. RIBASPHERE [Suspect]
     Indication: HEPATITIS C
     Dosage: 600MG TWICE DAILY ORAL
     Route: 048
     Dates: start: 20110812
  2. PEGASYS [Suspect]
     Dosage: 180MCG WEEKLY SUBCUTANEOUS
     Route: 058
     Dates: start: 20110812

REACTIONS (2)
  - NO THERAPEUTIC RESPONSE [None]
  - MOUTH ULCERATION [None]
